FAERS Safety Report 9897811 (Version 1)
Quarter: 2014Q1

REPORT INFORMATION
  Report Type: Report from Study
  Country: IL (occurrence: IL)
  Receive Date: 20140214
  Receipt Date: 20140214
  Transmission Date: 20141002
  Serious: Yes (Life-Threatening, Hospitalization)
  Sender: FDA-Public Use
  Company Number: IL-SA-2014SA014807

PATIENT
  Age: 61 Year
  Sex: Female

DRUGS (2)
  1. LANTUS [Suspect]
     Indication: DIABETES MELLITUS
     Route: 065
     Dates: start: 2013
  2. ANTIHYPERTENSIVES [Concomitant]
     Indication: HYPERTENSION

REACTIONS (2)
  - Hemiplegia [Recovering/Resolving]
  - Cerebrovascular accident [Recovering/Resolving]
